FAERS Safety Report 6958474-8 (Version None)
Quarter: 2010Q3

REPORT INFORMATION
  Report Type: 
  Country: None (occurrence: None)
  Receive Date: 20100827
  Receipt Date: 20100827
  Transmission Date: 20110219
  Serious: Yes (Hospitalization, Disabling)
  Sender: FDA-Public Use
  Company Number: None

PATIENT
  Age: 69 Year
  Sex: Male
  Weight: 66.1 kg

DRUGS (2)
  1. KIONEX [Suspect]
     Indication: HYPERKALAEMIA
     Dosage: 30 GRAMS NOW 047- ORALLY (NG TUBE)
     Route: 048
     Dates: start: 20100702, end: 20100702
  2. KIONEX [Suspect]
     Dosage: 60 GRAMS Q4H 047- ORALLY (NG TUBE)
     Route: 048
     Dates: start: 20100702, end: 20100703

REACTIONS (5)
  - DIARRHOEA [None]
  - GASTROINTESTINAL NECROSIS [None]
  - HAEMODIALYSIS [None]
  - INTESTINAL ISCHAEMIA [None]
  - RENAL FAILURE CHRONIC [None]
